FAERS Safety Report 9798573 (Version 1)
Quarter: 2013Q4

REPORT INFORMATION
  Report Type: Spontaneous
  Country: FR (occurrence: None)
  Receive Date: 20131231
  Receipt Date: 20131231
  Transmission Date: 20140711
  Serious: Yes (Other)
  Sender: FDA-Public Use
  Company Number: 2051432

PATIENT
  Age: 55 Year
  Sex: Female
  Weight: 96 kg

DRUGS (2)
  1. CARBOPLATIN [Suspect]
     Indication: OVARIAN CANCER
     Dosage: AUC 5, I.E. 830 MG
     Route: 042
     Dates: end: 20111209
  2. PACLITAXEL [Concomitant]

REACTIONS (12)
  - Hypersensitivity [None]
  - Malaise [None]
  - Hyperhidrosis [None]
  - Oxygen saturation decreased [None]
  - Neuropathy peripheral [None]
  - Metastases to fallopian tube [None]
  - Metastases to uterus [None]
  - Asthenia [None]
  - Diarrhoea [None]
  - Pain in extremity [None]
  - Hypotension [None]
  - Haemoglobin decreased [None]
